FAERS Safety Report 4609729-3 (Version None)
Quarter: 2005Q1

REPORT INFORMATION
  Report Type: 
  Country: None (occurrence: None)
  Receive Date: 20050314
  Receipt Date: 20050314
  Transmission Date: 20050727
  Serious: Yes (Other)
  Sender: FDA-Public Use
  Company Number: None

PATIENT
  Sex: Female
  Weight: 58.0604 kg

DRUGS (1)
  1. DIFFERIN [Suspect]
     Indication: ACNE
     Dates: start: 20040101, end: 20050301

REACTIONS (1)
  - ALOPECIA [None]
